FAERS Safety Report 5704238-2 (Version None)
Quarter: 2008Q2

REPORT INFORMATION
  Report Type: 
  Country: None (occurrence: None)
  Receive Date: 20080414
  Receipt Date: 20080411
  Transmission Date: 20081010
  Serious: Yes (Death)
  Sender: FDA-Public Use
  Company Number: US-RB-000735-08

PATIENT
  Age: 25 Year
  Sex: Male

DRUGS (5)
  1. SUBOXONE [Suspect]
     Route: 060
     Dates: start: 20080401, end: 20080408
  2. OXYGEN [Concomitant]
     Route: 045
     Dates: end: 20080408
  3. INVEGA [Suspect]
     Indication: DRUG USE FOR UNKNOWN INDICATION
     Route: 048
     Dates: start: 20080401, end: 20080408
  4. TRAZODONE HCL [Suspect]
     Indication: INSOMNIA
     Route: 048
     Dates: start: 20080401, end: 20080408
  5. ATARAX [Suspect]
     Indication: ANXIETY
     Route: 048
     Dates: start: 20080401, end: 20080408

REACTIONS (1)
  - ASTHMA [None]
